FAERS Safety Report 24747882 (Version 1)
Quarter: 2024Q4

REPORT INFORMATION
  Report Type: Spontaneous
  Country: US (occurrence: None)
  Receive Date: 20241217
  Receipt Date: 20241217
  Transmission Date: 20250114
  Serious: No
  Sender: Public
  Company Number: None

PATIENT
  Age: 60 Year
  Sex: Female
  Weight: 106 kg

DRUGS (1)
  1. DUPIXENT [Suspect]
     Active Substance: DUPILUMAB
     Indication: Asthma
     Dosage: 200 MG EVERY 2 WEEKS SUBCUTANEOUS
     Route: 058
     Dates: start: 20231228, end: 20241121

REACTIONS (3)
  - Abdominal pain [None]
  - Nausea [None]
  - Alopecia [None]

NARRATIVE: CASE EVENT DATE: 20241121
